FAERS Safety Report 7584259-8 (Version None)
Quarter: 2011Q2

REPORT INFORMATION
  Report Type: 
  Country: None (occurrence: None)
  Receive Date: 20110630
  Receipt Date: 20110623
  Transmission Date: 20111010
  Serious: Yes (Hospitalization)
  Sender: FDA-Public Use
  Company Number: US-B.I. PHARMACEUTICALS,INC./RIDGEFIELD-2011-BP-16137BP

PATIENT
  Age: 48 Year
  Sex: Female

DRUGS (1)
  1. DULCOLAX [Suspect]
     Indication: CONSTIPATION
     Route: 048
     Dates: start: 20010101

REACTIONS (3)
  - BLOOD POTASSIUM DECREASED [None]
  - HEART RATE INCREASED [None]
  - BLOOD CHOLESTEROL INCREASED [None]
